FAERS Safety Report 16372743 (Version 3)
Quarter: 2019Q2

REPORT INFORMATION
  Report Type: Spontaneous
  Country: JP (occurrence: JP)
  Receive Date: 20190530
  Receipt Date: 20190620
  Transmission Date: 20190711
  Serious: Yes (Death, Life-Threatening, Hospitalization, Other)
  Sender: FDA-Public Use
  Company Number: JP-BRISTOL-MYERS SQUIBB COMPANY-BMS-2019-016933

PATIENT
  Age: 63 Year
  Sex: Male
  Weight: 43.9 kg

DRUGS (12)
  1. MAGMITT [Concomitant]
     Active Substance: MAGNESIUM OXIDE
     Indication: CONSTIPATION
     Dosage: 250 MILLIGRAM, Q8H
     Route: 048
  2. FLUOROURACIL. [Suspect]
     Active Substance: FLUOROURACIL
     Indication: OROPHARYNGEAL CANCER
     Dosage: 1300 MILLIGRAM
     Route: 041
     Dates: start: 20180830, end: 20180904
  3. EMEND [Suspect]
     Active Substance: APREPITANT
     Indication: PRODUCT USED FOR UNKNOWN INDICATION
     Dosage: 80 MILLIGRAM, QD
     Route: 048
     Dates: start: 20180901, end: 20180901
  4. SUCRALFATE. [Concomitant]
     Active Substance: SUCRALFATE
     Indication: PRODUCT USED FOR UNKNOWN INDICATION
     Route: 048
  5. FAMOTIDINE OD ME [Concomitant]
     Indication: GASTRIC ULCER
     Dosage: UNK
     Route: 048
     Dates: start: 20180905, end: 20180911
  6. CISPLATIN. [Suspect]
     Active Substance: CISPLATIN
     Indication: OROPHARYNGEAL CANCER
     Dosage: 110 MILLIGRAM, QD
     Route: 041
     Dates: start: 20180830, end: 20180830
  7. EMEND [Suspect]
     Active Substance: APREPITANT
     Indication: PROPHYLAXIS
     Dosage: 125 MILLIGRAM
     Route: 048
     Dates: start: 20180831, end: 20180831
  8. OLOPATADINE HYDROCHLORIDE. [Concomitant]
     Active Substance: OLOPATADINE HYDROCHLORIDE
     Indication: RHINITIS ALLERGIC
     Dosage: 5 MILLIGRAM, Q12H
     Route: 048
     Dates: start: 20180808, end: 20181029
  9. GRANISETRON [Concomitant]
     Active Substance: GRANISETRON
     Indication: WHITE BLOOD CELL COUNT DECREASED
     Dosage: 3 MILLIGRAM, QD
     Route: 041
     Dates: start: 20180830, end: 20180830
  10. CALONAL [Concomitant]
     Active Substance: ACETAMINOPHEN
     Indication: HEADACHE
     Dosage: 500 MILLIGRAM, QD
     Route: 048
     Dates: start: 20180823, end: 20180823
  11. OPDIVO [Suspect]
     Active Substance: NIVOLUMAB
     Indication: HEAD AND NECK CANCER
     Dosage: 160 MILLIGRAM
     Route: 041
     Dates: start: 20180216, end: 20180406
  12. ERBITUX [Suspect]
     Active Substance: CETUXIMAB
     Indication: OROPHARYNGEAL CANCER
     Dosage: 400 MILLIGRAM
     Route: 041
     Dates: start: 20180801, end: 20180927

REACTIONS (4)
  - Adrenal insufficiency [Not Recovered/Not Resolved]
  - Secondary adrenocortical insufficiency [Unknown]
  - Malignant neoplasm progression [Fatal]
  - Therapeutic response decreased [Unknown]

NARRATIVE: CASE EVENT DATE: 20181002
